FAERS Safety Report 11135435 (Version 1)
Quarter: 2015Q2

REPORT INFORMATION
  Report Type: Spontaneous
  Country: US (occurrence: None)
  Receive Date: 20150522
  Receipt Date: 20150522
  Transmission Date: 20150821
  Serious: No
  Sender: FDA-Public Use
  Company Number: None

PATIENT
  Age: 51 Year
  Sex: Female
  Weight: 63.5 kg

DRUGS (5)
  1. VITAMIN D [Concomitant]
     Active Substance: CHOLECALCIFEROL
  2. CPAP [Concomitant]
     Active Substance: DEVICE
  3. FISH OIL [Concomitant]
     Active Substance: FISH OIL
  4. 50+ MULTIVITAMIN [Concomitant]
  5. KIRKLAND SIGNATURE ALLER TEC ALLERGY [Suspect]
     Active Substance: CETIRIZINE HYDROCHLORIDE
     Indication: SEASONAL ALLERGY
     Dosage: 1
     Route: 048
     Dates: start: 20140907, end: 20150508

REACTIONS (4)
  - Back pain [None]
  - Musculoskeletal stiffness [None]
  - Neck pain [None]
  - Arthralgia [None]

NARRATIVE: CASE EVENT DATE: 20150507
